FAERS Safety Report 7160640-6 (Version None)
Quarter: 2010Q4

REPORT INFORMATION
  Report Type: 
  Country: None (occurrence: None)
  Receive Date: 20101214
  Receipt Date: 20091211
  Transmission Date: 20110411
  Serious: No
  Sender: FDA-Public Use
  Company Number: US-AMGEN-KDL379769

PATIENT

DRUGS (7)
  1. ENBREL [Suspect]
     Indication: PRODUCT USED FOR UNKNOWN INDICATION
     Dosage: 50 MG, QWK
     Route: 058
  2. DICLOFENAC SODIUM [Concomitant]
     Dosage: UNK UNK, UNK
  3. ENALAPRIL [Concomitant]
     Dosage: 20 MG, UNK
  4. GLIPIZIDE [Concomitant]
     Dosage: 10 MG, UNK
  5. ALBUTEROL SULFATE [Concomitant]
     Dosage: 90 A?G, UNK
  6. ASPIRIN [Concomitant]
     Dosage: 81 MG, UNK
  7. CLOPIDOGREL BISULFATE [Concomitant]
     Dosage: 75 MG, UNK

REACTIONS (1)
  - ARTHRALGIA [None]
